FAERS Safety Report 7306116-4 (Version None)
Quarter: 2011Q1

REPORT INFORMATION
  Report Type: 
  Country: None (occurrence: None)
  Receive Date: 20110222
  Receipt Date: 20110216
  Transmission Date: 20110831
  Serious: Yes (Other)
  Sender: FDA-Public Use
  Company Number: CHPA2011US02819

PATIENT
  Age: 49 Year
  Sex: Female

DRUGS (2)
  1. PREVACID 24 HR [Suspect]
     Indication: GASTRIC ULCER
     Route: 048
  2. PREVACID 24 HR [Suspect]
     Indication: GASTROOESOPHAGEAL REFLUX DISEASE
     Dosage: 30 MG, QD
     Route: 048

REACTIONS (7)
  - GASTRIC HAEMORRHAGE [None]
  - HEADACHE [None]
  - OFF LABEL USE [None]
  - TREATMENT NONCOMPLIANCE [None]
  - FOOT OPERATION [None]
  - INTENTIONAL DRUG MISUSE [None]
  - OVERDOSE [None]
